FAERS Safety Report 15283045 (Version 1)
Quarter: 2018Q4

REPORT INFORMATION
  Report Type: Spontaneous
  Country: US (occurrence: US)
  Receive Date: 20180816
  Receipt Date: 20180816
  Transmission Date: 20190204
  Serious: No
  Sender: FDA-Public Use
  Company Number: US-BION-007251

PATIENT

DRUGS (1)
  1. VALPROIC ACID BION PHARMA 250MG [Suspect]
     Active Substance: VALPROIC ACID
     Indication: PRODUCT USED FOR UNKNOWN INDICATION
     Dosage: STRENGTH: 250 MG ?NDC- 69452-0150-20

REACTIONS (5)
  - Product packaging issue [Unknown]
  - Poor quality product administered [Not Recovered/Not Resolved]
  - No adverse event [Unknown]
  - Product dispensing error [Not Recovered/Not Resolved]
  - Product odour abnormal [Unknown]
